FAERS Safety Report 9780179 (Version 2)
Quarter: 2014Q1

REPORT INFORMATION
  Report Type: Spontaneous
  Country: GB (occurrence: GB)
  Receive Date: 20131223
  Receipt Date: 20140128
  Transmission Date: 20141002
  Serious: Yes (Hospitalization, Other)
  Sender: FDA-Public Use
  Company Number: PHFR2013GB007257

PATIENT
  Sex: Male

DRUGS (4)
  1. CLOZARIL [Suspect]
     Dosage: UNK
     Route: 048
     Dates: start: 20121205, end: 20131203
  2. CLOZARIL [Suspect]
     Dosage: TITRATED DOSE
     Route: 048
  3. OLANZAPINE [Suspect]
     Dosage: UNK UKN, UNK
  4. OLANZAPINE [Suspect]
     Dosage: DOSE REDUCED

REACTIONS (2)
  - Circulatory collapse [Unknown]
  - Orthostatic hypotension [Unknown]
